FAERS Safety Report 14544184 (Version 1)
Quarter: 2018Q1

REPORT INFORMATION
  Report Type: Spontaneous
  Country: US (occurrence: US)
  Receive Date: 20180215
  Receipt Date: 20180215
  Transmission Date: 20180509
  Serious: Yes (Hospitalization)
  Sender: FDA-Public Use
  Company Number: None

PATIENT
  Age: 70 Year
  Sex: Female

DRUGS (1)
  1. LETAIRIS [Suspect]
     Active Substance: AMBRISENTAN
     Indication: PULMONARY ARTERIAL HYPERTENSION
     Route: 048
     Dates: start: 201607

REACTIONS (7)
  - Gallbladder enlargement [None]
  - Nausea [None]
  - Vomiting [None]
  - Diarrhoea [None]
  - Viral infection [None]
  - Lactic acidosis [None]
  - Abdominal pain [None]

NARRATIVE: CASE EVENT DATE: 20180128
